FAERS Safety Report 7576865-1 (Version None)
Quarter: 2011Q2

REPORT INFORMATION
  Report Type: 
  Country: None (occurrence: None)
  Receive Date: 20110628
  Receipt Date: 20110614
  Transmission Date: 20111010
  Serious: Yes (Other)
  Sender: FDA-Public Use
  Company Number: US-BAYER-2011-035238

PATIENT
  Age: 31 Year
  Sex: Male

DRUGS (4)
  1. LORTAB [Concomitant]
  2. MAGNEVIST [Suspect]
     Indication: NUCLEAR MAGNETIC RESONANCE IMAGING BRAIN
     Dosage: 10 ML, ONCE
     Route: 042
     Dates: start: 20110411, end: 20110411
  3. SKELAXIN [Concomitant]
  4. OMEPRAZOLE [Concomitant]

REACTIONS (4)
  - INJECTION SITE THROMBOSIS [None]
  - TENDERNESS [None]
  - INJECTION SITE INDURATION [None]
  - YELLOW SKIN [None]
